FAERS Safety Report 14494265 (Version 2)
Quarter: 2018Q1

REPORT INFORMATION
  Report Type: Spontaneous
  Country: GB (occurrence: GB)
  Receive Date: 20180206
  Receipt Date: 20180305
  Transmission Date: 20180509
  Serious: Yes (Other)
  Sender: FDA-Public Use
  Company Number: GB-DRREDDYS-USA/UKI/18/0096167

PATIENT
  Age: 14 Year
  Sex: Male

DRUGS (1)
  1. FLUOXETINE [Suspect]
     Active Substance: FLUOXETINE HYDROCHLORIDE
     Indication: DEPRESSION
     Dosage: HIGH DOSE
     Route: 065

REACTIONS (2)
  - Hemiplegia [Recovered/Resolved]
  - Serotonin syndrome [Recovered/Resolved]
